FAERS Safety Report 7422004-7 (Version None)
Quarter: 2011Q2

REPORT INFORMATION
  Report Type: 
  Country: None (occurrence: None)
  Receive Date: 20110418
  Receipt Date: 20110414
  Transmission Date: 20111010
  Serious: Yes (Other)
  Sender: FDA-Public Use
  Company Number: BR-PFIZER INC-2011078000

PATIENT
  Age: 30 Year
  Sex: Male
  Weight: 85 kg

DRUGS (2)
  1. RIVOTRIL [Suspect]
     Dosage: 2 MG, UNSPECIFIED FREQUENCY
  2. CHAMPIX [Suspect]
     Indication: TOBACCO ABUSE
     Dosage: UNK
     Route: 048
     Dates: start: 20110319, end: 20110101

REACTIONS (6)
  - PANIC DISORDER [None]
  - CONSTIPATION [None]
  - DYSPNOEA [None]
  - SENSORY DISTURBANCE [None]
  - FEAR [None]
  - EMOTIONAL DISORDER [None]
